FAERS Safety Report 18916991 (Version 5)
Quarter: 2021Q2

REPORT INFORMATION
  Report Type: Spontaneous
  Country: JP (occurrence: JP)
  Receive Date: 20210219
  Receipt Date: 20210616
  Transmission Date: 20210717
  Serious: Yes (Death, Hospitalization, Other)
  Sender: FDA-Public Use
  Company Number: JP-DSJP-DSJ-2021-104918

PATIENT
  Age: 72 Year
  Sex: Female
  Weight: 39 kg

DRUGS (19)
  1. ENHERTU [Suspect]
     Active Substance: FAM-TRASTUZUMAB DERUXTECAN-NXKI
     Indication: ADENOCARCINOMA GASTRIC
     Dosage: 5.4 MG/KG, ONCE EVERY 3 WK
     Route: 041
     Dates: start: 20210119, end: 20210119
  2. ENHERTU [Suspect]
     Active Substance: FAM-TRASTUZUMAB DERUXTECAN-NXKI
     Dosage: 4.4 MG/KG, ONCE EVERY 3 WK
     Route: 041
     Dates: start: 20210209, end: 20210209
  3. MEROPENEM                          /01250502/ [Concomitant]
     Active Substance: MEROPENEM
     Indication: URINARY TRACT INFECTION
     Dosage: 0.5 G, TID
     Route: 041
     Dates: start: 20201231, end: 20210113
  4. CPR [Concomitant]
     Dosage: UNK
     Route: 065
     Dates: start: 20210202, end: 20210205
  5. THYRADIN S [Concomitant]
     Active Substance: LEVOTHYROXINE SODIUM
     Indication: HYPOTHYROIDISM
     Dosage: 25 UG, QD
     Route: 048
     Dates: start: 20201228
  6. SENNOSIDE                          /00571901/ [Concomitant]
     Active Substance: SENNOSIDES A AND B
     Indication: CONSTIPATION
     Dosage: 24 MG, QD
     Route: 048
     Dates: start: 20201215
  7. FERROUS CITRATE NA [Concomitant]
     Active Substance: SODIUM FERROUS CITRATE
     Indication: IRON DEFICIENCY ANAEMIA
     Dosage: 100 MG, QD
     Route: 048
     Dates: start: 20160206
  8. FUROSEMIDE. [Concomitant]
     Active Substance: FUROSEMIDE
     Indication: CHRONIC KIDNEY DISEASE
     Dosage: 20 MG, QD
     Route: 048
     Dates: start: 20200715, end: 20210105
  9. ENHERTU [Suspect]
     Active Substance: FAM-TRASTUZUMAB DERUXTECAN-NXKI
     Indication: HER2 POSITIVE GASTRIC CANCER
     Dosage: 6.4 MG/KG, ONCE EVERY 3 WK
     Route: 041
     Dates: start: 20201215, end: 20201215
  10. CALONAL [Concomitant]
     Active Substance: ACETAMINOPHEN
     Indication: CANCER PAIN
     Dosage: 1000 MG, TID
     Route: 048
     Dates: start: 20201209
  11. MIYA?BM [Concomitant]
     Active Substance: CLOSTRIDIUM BUTYRICUM SPORES STRAIN M-55
     Indication: ENTEROCOLITIS
     Dosage: 1 G, TID
     Route: 048
     Dates: start: 20160713
  12. FUROSEMIDE. [Concomitant]
     Active Substance: FUROSEMIDE
     Indication: HYDRONEPHROSIS
  13. NARURAPID [Concomitant]
     Active Substance: HYDROMORPHONE HYDROCHLORIDE
     Indication: CANCER PAIN
     Dosage: 1 MG, QD
     Route: 048
     Dates: start: 20201209
  14. DAIKENCHUTO [Concomitant]
     Active Substance: HERBALS
     Indication: ABDOMINAL DISTENSION
     Dosage: 2.5 G, TID
     Route: 048
     Dates: start: 20200430
  15. NIFEDIPINE. [Concomitant]
     Active Substance: NIFEDIPINE
     Indication: HYPERTENSION
     Dosage: 10 MG, QD
     Route: 048
     Dates: start: 20201014
  16. METOCLOPRAMIDE. [Concomitant]
     Active Substance: METOCLOPRAMIDE
     Dosage: 5 MG, TID
     Route: 048
     Dates: start: 20201222, end: 20210105
  17. VANCOMYCIN                         /00314402/ [Concomitant]
     Active Substance: VANCOMYCIN
     Dosage: UNK
     Route: 041
     Dates: start: 20210128, end: 20210201
  18. G?CSF [Concomitant]
     Active Substance: GRANULOCYTE COLONY-STIMULATING FACTOR NOS
     Dosage: UNK
     Route: 065
     Dates: start: 20210131, end: 20210131
  19. NARUSUS [Concomitant]
     Active Substance: HYDROMORPHONE HYDROCHLORIDE
     Indication: CANCER PAIN
     Dosage: 2 MG, QD
     Route: 048
     Dates: start: 20201228

REACTIONS (14)
  - Vomiting [Unknown]
  - Neutrophil count decreased [Recovered/Resolved]
  - Decreased appetite [Recovered/Resolved]
  - Urinary tract infection [Recovered/Resolved]
  - Malaise [Unknown]
  - Platelet count decreased [Recovered/Resolved]
  - Renal impairment [Recovering/Resolving]
  - Delirium [Recovered/Resolved]
  - Disease progression [Fatal]
  - Sepsis [Recovered/Resolved]
  - Dehydration [Recovered/Resolved]
  - Pleural effusion [Recovering/Resolving]
  - Nausea [Unknown]
  - Malaise [Recovered/Resolved]

NARRATIVE: CASE EVENT DATE: 20201215
